FAERS Safety Report 21562751 (Version 2)
Quarter: 2022Q4

REPORT INFORMATION
  Report Type: Spontaneous
  Country: IT (occurrence: IT)
  Receive Date: 20221107
  Receipt Date: 20221115
  Transmission Date: 20230113
  Serious: Yes (Other)
  Sender: FDA-Public Use
  Company Number: IT-AMGEN-ITASP2022190434

PATIENT
  Age: 46 Year
  Sex: Female

DRUGS (1)
  1. AIMOVIG [Suspect]
     Active Substance: ERENUMAB-AOOE
     Indication: Migraine
     Dosage: 1 DOSAGE FORM, 28D (1 VIAL EVERY 28 DAYS)
     Route: 030
     Dates: start: 20220311, end: 20221001

REACTIONS (1)
  - Allergic lymphangitis [Recovered/Resolved]

NARRATIVE: CASE EVENT DATE: 20220311
